FAERS Safety Report 5197618-8 (Version None)
Quarter: 2007Q1

REPORT INFORMATION
  Report Type: 
  Country: None (occurrence: None)
  Receive Date: 20070103
  Receipt Date: 20061222
  Transmission Date: 20070707
  Serious: Yes (Other)
  Sender: FDA-Public Use
  Company Number: JP-PFIZER INC-2006147056

PATIENT
  Age: 70 Year
  Sex: Male

DRUGS (5)
  1. DETRUSITOL SR [Suspect]
     Indication: HYPERTONIC BLADDER
     Dosage: DAILY DOSE:4MG
     Route: 048
     Dates: start: 20061124, end: 20061124
  2. HARNAL [Concomitant]
     Route: 048
  3. ADALAT [Concomitant]
     Route: 048
  4. MICARDIS [Concomitant]
     Route: 048
  5. PAXIL [Concomitant]
     Route: 048

REACTIONS (3)
  - CEREBROVASCULAR STENOSIS [None]
  - HYPERTENSION [None]
  - VISION BLURRED [None]
